FAERS Safety Report 12832986 (Version 1)
Quarter: 2016Q4

REPORT INFORMATION
  Report Type: Spontaneous
  Country: US (occurrence: US)
  Receive Date: 20161010
  Receipt Date: 20161010
  Transmission Date: 20170207
  Serious: No
  Sender: FDA-Public Use
  Company Number: US-BAYER-2016-194663

PATIENT
  Sex: Female

DRUGS (1)
  1. CLIMARA [Suspect]
     Active Substance: ESTRADIOL
     Indication: HORMONE REPLACEMENT THERAPY
     Dosage: WEEKLY PATCH
     Route: 062
     Dates: start: 1991

REACTIONS (4)
  - Product adhesion issue [None]
  - Product physical issue [None]
  - Device use error [None]
  - Anxiety [None]

NARRATIVE: CASE EVENT DATE: 2016
